FAERS Safety Report 5951132-8 (Version None)
Quarter: 2008Q4

REPORT INFORMATION
  Report Type: 
  Country: None (occurrence: None)
  Receive Date: 20081112
  Receipt Date: 20081112
  Transmission Date: 20090506
  Serious: Yes (Death, Life-Threatening, Hospitalization)
  Sender: FDA-Public Use
  Company Number: None

PATIENT
  Sex: Female
  Weight: 43.7 kg

DRUGS (1)
  1. CEFOTETAN [Suspect]
     Indication: BILE DUCT CANCER

REACTIONS (6)
  - ASTHENIA [None]
  - DIZZINESS POSTURAL [None]
  - JAUNDICE [None]
  - NAUSEA [None]
  - SYNCOPE [None]
  - YELLOW SKIN [None]
